FAERS Safety Report 23882272 (Version 1)
Quarter: 2024Q2

REPORT INFORMATION
  Report Type: Report from Study
  Country: US (occurrence: US)
  Receive Date: 20240522
  Receipt Date: 20240522
  Transmission Date: 20240715
  Serious: Yes (Hospitalization)
  Sender: FDA-Public Use
  Company Number: US-ABBVIE-5767011

PATIENT
  Age: 37 Year
  Sex: Male

DRUGS (3)
  1. RINVOQ [Suspect]
     Active Substance: UPADACITINIB
     Indication: Crohn^s disease
     Dosage: STRENGTH 45 MG FOR 7 WEEKS ONE TIME A DAY
     Route: 048
     Dates: start: 202402, end: 202405
  2. RINVOQ [Suspect]
     Active Substance: UPADACITINIB
     Indication: Crohn^s disease
     Dosage: STRENGTH 30 MG
     Route: 048
     Dates: start: 20240511
  3. RINVOQ [Suspect]
     Active Substance: UPADACITINIB
     Indication: Crohn^s disease
     Dosage: STRENGTH 30 MG
     Route: 048
     Dates: start: 2024, end: 202405

REACTIONS (2)
  - Abscess limb [Unknown]
  - Fistula [Unknown]

NARRATIVE: CASE EVENT DATE: 20240501
